FAERS Safety Report 9555575 (Version 1)
Quarter: 2013Q3

REPORT INFORMATION
  Report Type: Spontaneous
  Country: US (occurrence: None)
  Receive Date: 20130826
  Receipt Date: 20130826
  Transmission Date: 20140515
  Serious: Yes (Hospitalization, Other)
  Sender: FDA-Public Use
  Company Number: 2013AP006886

PATIENT
  Age: 60 Year
  Sex: Male

DRUGS (3)
  1. OLANZAPINE ORALLY DISINTEGRATING TABLETS [Suspect]
     Indication: SCHIZOPHRENIA, DISORGANISED TYPE
  2. HALOPERIDOL DECANOATE [Suspect]
     Indication: SCHIZOPHRENIA, DISORGANISED TYPE
     Route: 030
  3. VALPROATE SEMISODIUM [Concomitant]

REACTIONS (1)
  - Neuroleptic malignant syndrome [None]
